FAERS Safety Report 4558283-3 (Version None)
Quarter: 2005Q1

REPORT INFORMATION
  Report Type: 
  Country: None (occurrence: None)
  Receive Date: 20050103
  Receipt Date: 20041020
  Transmission Date: 20050727
  Serious: Yes (Other)
  Sender: FDA-Public Use
  Company Number: 2004UW21822

PATIENT
  Age: 76 Year
  Sex: Female
  Weight: 68.038 kg

DRUGS (5)
  1. TOPROL-XL [Suspect]
     Indication: BLOOD PRESSURE INCREASED
     Dosage: 25 MG QD PO
     Route: 048
  2. CRESTOR [Suspect]
     Indication: BLOOD CHOLESTEROL INCREASED
     Dosage: 10 MG QD PO
     Route: 048
  3. ASPIRIN [Concomitant]
  4. FOSAMAX [Concomitant]
  5. HYDROCHLOROTHIAZIDE [Concomitant]

REACTIONS (1)
  - ALOPECIA [None]
